FAERS Safety Report 7418939-1 (Version None)
Quarter: 2011Q2

REPORT INFORMATION
  Report Type: 
  Country: None (occurrence: None)
  Receive Date: 20110415
  Receipt Date: 20110408
  Transmission Date: 20111010
  Serious: Yes (Other)
  Sender: FDA-Public Use
  Company Number: AU-PURDUE-USA-2011-0064543

PATIENT
  Sex: Female

DRUGS (1)
  1. NORSPAN (NDA 21-306) [Suspect]
     Indication: PAIN MANAGEMENT
     Dosage: 10 MCG/HR, DAILY
     Route: 062
     Dates: start: 20100101

REACTIONS (5)
  - LOSS OF CONSCIOUSNESS [None]
  - ASTHENIA [None]
  - SENSORY LOSS [None]
  - DIZZINESS [None]
  - VISION BLURRED [None]
